FAERS Safety Report 5638414-4 (Version None)
Quarter: 2008Q1

REPORT INFORMATION
  Report Type: 
  Country: None (occurrence: None)
  Receive Date: 20080222
  Receipt Date: 20080222
  Transmission Date: 20080703
  Serious: Yes (Hospitalization)
  Sender: FDA-Public Use
  Company Number: None

PATIENT
  Sex: Male
  Weight: 38 kg

DRUGS (23)
  1. DOXORUBICIN HYDROCHLORIDE [Suspect]
     Dosage: 90 MG
  2. METHOTREXATE [Suspect]
     Dosage: 26000 MG
  3. CISPLATIN [Suspect]
     Dosage: 145 MG
  4. DEXTROSE [Concomitant]
  5. EPINEPHRINE [Concomitant]
  6. FLUCONAZOLE INJ [Concomitant]
  7. HEPARIN [Concomitant]
  8. INFLUENZA VACCINE [Concomitant]
  9. LEUCOVORIN INJ [Concomitant]
  10. LORAZEPAM [Concomitant]
  11. MEPERIDINE INJ [Concomitant]
  12. METHADONE INJ [Concomitant]
  13. MIDAZOLAM INJ [Concomitant]
  14. NITROGLYCERIN [Concomitant]
  15. ONDANSERON INJ [Concomitant]
  16. PROPOFOL [Concomitant]
  17. SULFAMETHOXAZOLE + TRIMETHOPRIM [Concomitant]
  18. SODIUM BICARB INJ [Concomitant]
  19. SODIUM CITRATE [Concomitant]
  20. TOBRAMYCIN INJ [Concomitant]
  21. TPN [Concomitant]
  22. VANCOMYCIN [Concomitant]
  23. VECURONIUM INJ [Concomitant]

REACTIONS (10)
  - CAECITIS [None]
  - CARDIAC FAILURE CONGESTIVE [None]
  - DIALYSIS [None]
  - FLUID OVERLOAD [None]
  - LACTIC ACIDOSIS [None]
  - MULTI-ORGAN FAILURE [None]
  - PULMONARY HYPERTENSION [None]
  - RENAL FAILURE ACUTE [None]
  - SEPTIC SHOCK [None]
  - SHOCK [None]
